FAERS Safety Report 10368292 (Version 1)
Quarter: 2014Q3

REPORT INFORMATION
  Report Type: Spontaneous
  Country: US (occurrence: US)
  Receive Date: 20140807
  Receipt Date: 20140807
  Transmission Date: 20150326
  Serious: Yes (Hospitalization)
  Sender: FDA-Public Use
  Company Number: US-B.I. PHARMACEUTICALS,INC./RIDGEFIELD-2014-BI-35620BP

PATIENT
  Sex: Male

DRUGS (17)
  1. VITAMIN D2 [Concomitant]
     Active Substance: ERGOCALCIFEROL
     Route: 065
  2. TERAZOSIN [Concomitant]
     Active Substance: TERAZOSIN\TERAZOSIN HYDROCHLORIDE
     Route: 065
  3. LISINOPRIL. [Concomitant]
     Active Substance: LISINOPRIL
     Route: 065
  4. TRAZODONE [Concomitant]
     Active Substance: TRAZODONE HYDROCHLORIDE
     Route: 065
  5. ZOLPIDEM [Concomitant]
     Active Substance: ZOLPIDEM\ZOLPIDEM TARTRATE
     Route: 065
  6. COLLAGEN [Concomitant]
     Active Substance: COLLAGEN
     Route: 065
  7. MULTAQ [Concomitant]
     Active Substance: DRONEDARONE
     Route: 065
  8. AMLODIPINE [Concomitant]
     Active Substance: AMLODIPINE BESYLATE
     Route: 065
  9. LANTUS INSULIN [Concomitant]
     Route: 065
  10. IMDUR [Concomitant]
     Active Substance: ISOSORBIDE MONONITRATE
     Route: 065
  11. CLONIDINE. [Concomitant]
     Active Substance: CLONIDINE
     Route: 065
  12. NIACIN. [Concomitant]
     Active Substance: NIACIN
     Route: 065
  13. FOLIC ACID. [Concomitant]
     Active Substance: FOLIC ACID
     Route: 065
  14. LASIX [Concomitant]
     Active Substance: FUROSEMIDE
     Route: 065
  15. METOPROLOL [Concomitant]
     Active Substance: METOPROLOL
     Route: 065
  16. PRADAXA [Suspect]
     Active Substance: DABIGATRAN ETEXILATE MESYLATE
     Indication: ATRIAL FIBRILLATION
     Route: 065
  17. PRAVASTATIN [Concomitant]
     Active Substance: PRAVASTATIN\PRAVASTATIN SODIUM
     Route: 065

REACTIONS (4)
  - Normochromic normocytic anaemia [Unknown]
  - Troponin [Unknown]
  - Haematuria [Unknown]
  - International normalised ratio increased [Unknown]
